FAERS Safety Report 9685043 (Version 1)
Quarter: 2013Q4

REPORT INFORMATION
  Report Type: Spontaneous
  Country: BR (occurrence: BR)
  Receive Date: 20131113
  Receipt Date: 20131113
  Transmission Date: 20140711
  Serious: Yes (Disabling, Other)
  Sender: FDA-Public Use
  Company Number: BR-JNJFOC-20131106234

PATIENT
  Age: 82 Year
  Sex: Female

DRUGS (7)
  1. XARELTO [Suspect]
     Indication: CEREBROVASCULAR ACCIDENT PROPHYLAXIS
     Route: 048
     Dates: start: 20131030
  2. CARDIZEM [Concomitant]
     Indication: ARRHYTHMIA
     Route: 048
  3. CARDIZEM [Concomitant]
     Indication: ARRHYTHMIA
     Route: 048
     Dates: start: 1993
  4. CARDIZEM [Concomitant]
     Indication: HYPERTENSION
     Route: 048
  5. CARDIZEM [Concomitant]
     Indication: HYPERTENSION
     Route: 048
     Dates: start: 1993
  6. LEXOTAN [Concomitant]
     Route: 048
  7. OMEPRAZOLE [Concomitant]
     Route: 048

REACTIONS (9)
  - Pain in extremity [Not Recovered/Not Resolved]
  - Abasia [Not Recovered/Not Resolved]
  - Pruritus [Not Recovered/Not Resolved]
  - Nausea [Not Recovered/Not Resolved]
  - Throat irritation [Not Recovered/Not Resolved]
  - Somnolence [Not Recovered/Not Resolved]
  - Dizziness [Not Recovered/Not Resolved]
  - Headache [Not Recovered/Not Resolved]
  - Disturbance in attention [Not Recovered/Not Resolved]
